FAERS Safety Report 10952149 (Version 1)
Quarter: 2015Q1

REPORT INFORMATION
  Report Type: Spontaneous
  Country: US (occurrence: None)
  Receive Date: 20150324
  Receipt Date: 20150324
  Transmission Date: 20150721
  Serious: Yes (Life-Threatening, Hospitalization, Disabling, Other)
  Sender: FDA-Public Use
  Company Number: None

PATIENT
  Age: 79 Year
  Sex: Male
  Weight: 58.97 kg

DRUGS (7)
  1. REVLIMID [Suspect]
     Active Substance: LENALIDOMIDE
     Indication: PLASMA CELL MYELOMA
     Dosage: 10 MG SINCE AUG 2013 1 PILL DAILY FOR 3 WEEKS FOLLOWED BY A WEEK OFF, THEN REPEAT, BY MOUTH
     Route: 048
     Dates: start: 201212, end: 201407
  2. FLOMAX [Concomitant]
     Active Substance: TAMSULOSIN HYDROCHLORIDE
  3. ASPIRIN. [Concomitant]
     Active Substance: ASPIRIN
  4. VITAMIN B-3 [Concomitant]
  5. VITAMIN B12 [Concomitant]
     Active Substance: CYANOCOBALAMIN
  6. SIMVASTATIN. [Concomitant]
     Active Substance: SIMVASTATIN
  7. FLAXSEED [Concomitant]
     Active Substance: FLAX SEED

REACTIONS (7)
  - Thrombosis [None]
  - Feeding disorder [None]
  - Cellulitis [None]
  - Weight decreased [None]
  - Activities of daily living impaired [None]
  - Neuropathy peripheral [None]
  - Vitamin B12 deficiency [None]

NARRATIVE: CASE EVENT DATE: 20130810
